FAERS Safety Report 21766622 (Version 1)
Quarter: 2022Q4

REPORT INFORMATION
  Report Type: Report from Study
  Country: ES (occurrence: ES)
  Receive Date: 20221222
  Receipt Date: 20221222
  Transmission Date: 20230113
  Serious: Yes (Other)
  Sender: FDA-Public Use
  Company Number: ES-PFIZER INC-202201378583

PATIENT
  Age: 72 Year

DRUGS (4)
  1. CARBOPLATIN [Suspect]
     Active Substance: CARBOPLATIN
     Indication: Squamous cell carcinoma of the oral cavity
     Dosage: AUC 3 - 250 MG/D (MEAN DOSE RECEIVED 152 MG/M2), 2 CYCLES
  2. PACLITAXEL [Suspect]
     Active Substance: PACLITAXEL
     Indication: Squamous cell carcinoma of the oral cavity
     Dosage: INITIAL DOSE 125 MG/M2 (202 MG/D): MEAN DOSE RECEIVED 125 MG/M2, 2 CYCLES
  3. PEMBROLIZUMAB [Suspect]
     Active Substance: PEMBROLIZUMAB
     Indication: Squamous cell carcinoma of the oral cavity
     Dosage: 200 MG/M2, 2 CYCLE
     Route: 042
  4. PEMBROLIZUMAB [Suspect]
     Active Substance: PEMBROLIZUMAB
     Dosage: 200 MG/M2, MAINTENANCE
     Route: 042

REACTIONS (1)
  - Neuropathy peripheral [Unknown]
